FAERS Safety Report 4698483-5 (Version None)
Quarter: 2005Q2

REPORT INFORMATION
  Report Type: 
  Country: None (occurrence: None)
  Receive Date: 20050621
  Receipt Date: 20050602
  Transmission Date: 20051028
  Serious: Yes (Other)
  Sender: FDA-Public Use
  Company Number: FR_050606569

PATIENT
  Age: 51 Year
  Sex: Female

DRUGS (1)
  1. GEMZAR [Suspect]
     Indication: PANCREATIC CARCINOMA
     Dates: start: 20050101

REACTIONS (4)
  - DISEASE PROGRESSION [None]
  - GASTRIC DISORDER [None]
  - HAEMANGIOMA [None]
  - MELAENA [None]
